FAERS Safety Report 4622509-8 (Version None)
Quarter: 2005Q1

REPORT INFORMATION
  Report Type: 
  Country: None (occurrence: None)
  Receive Date: 20050330
  Receipt Date: 20050202
  Transmission Date: 20050727
  Serious: Yes (Other)
  Sender: FDA-Public Use
  Company Number: BR-ROCHE-394523

PATIENT
  Sex: Female
  Weight: 60 kg

DRUGS (2)
  1. ROACUTAN [Suspect]
     Indication: ACNE
     Route: 048
     Dates: start: 20040915, end: 20050201
  2. NUVARING [Concomitant]
     Route: 067

REACTIONS (3)
  - ABORTION INDUCED [None]
  - COMPLICATIONS OF MATERNAL EXPOSURE TO THERAPEUTIC DRUGS [None]
  - PREGNANCY [None]
